FAERS Safety Report 22601131 (Version 1)
Quarter: 2023Q2

REPORT INFORMATION
  Report Type: Spontaneous
  Country: US (occurrence: US)
  Receive Date: 20230614
  Receipt Date: 20230614
  Transmission Date: 20230722
  Serious: No
  Sender: FDA-Public Use
  Company Number: US-RIGEL PHARMACEUTICALS, INC.-2022FOS000797

PATIENT
  Sex: Male

DRUGS (3)
  1. TAVALISSE [Suspect]
     Active Substance: FOSTAMATINIB
     Indication: Immune thrombocytopenia
     Dosage: 150 MG, BID
     Route: 048
     Dates: start: 2022
  2. TAVALISSE [Suspect]
     Active Substance: FOSTAMATINIB
     Dosage: 1 TABLET TWICE DAILY
     Route: 048
     Dates: start: 20220929
  3. NPLATE [Concomitant]
     Active Substance: ROMIPLOSTIM
     Indication: Product used for unknown indication
     Dosage: UNK
     Route: 065

REACTIONS (5)
  - Platelet count decreased [Unknown]
  - Platelet count [Unknown]
  - Eye contusion [Unknown]
  - Eye infection [Unknown]
  - Ulcer haemorrhage [Unknown]

NARRATIVE: CASE EVENT DATE: 20220101
